FAERS Safety Report 9671170 (Version 5)
Quarter: 2013Q4

REPORT INFORMATION
  Report Type: Spontaneous
  Country: US (occurrence: US)
  Receive Date: 20131106
  Receipt Date: 20131213
  Transmission Date: 20140711
  Serious: Yes (Hospitalization)
  Sender: FDA-Public Use
  Company Number: US-BAXTER-2013BAX042436

PATIENT
  Sex: Male

DRUGS (4)
  1. DIANEAL LOW CALCIUM (ULTRABAG) [Suspect]
     Indication: RENAL FAILURE CHRONIC
     Route: 033
  2. DIANEAL LOW CALCIUM (ULTRABAG) [Suspect]
     Indication: RENAL FAILURE CHRONIC
     Route: 033
  3. EXTRANEAL [Suspect]
     Indication: RENAL FAILURE CHRONIC
     Route: 033
  4. MAGNESIUM [Concomitant]
     Indication: BLOOD MAGNESIUM DECREASED

REACTIONS (4)
  - Colitis [Recovered/Resolved]
  - Blood magnesium decreased [Recovered/Resolved]
  - Drug dose omission [Recovering/Resolving]
  - Hypotension [Recovering/Resolving]
